FAERS Safety Report 11448572 (Version 2)
Quarter: 2015Q4

REPORT INFORMATION
  Report Type: Report from Study
  Country: BR (occurrence: BR)
  Receive Date: 20150902
  Receipt Date: 20151015
  Transmission Date: 20160304
  Serious: Yes (Other)
  Sender: FDA-Public Use
  Company Number: PHHY2015BR103914

PATIENT
  Sex: Male
  Weight: 57 kg

DRUGS (4)
  1. SULPAN [Concomitant]
     Active Substance: BROMAZEPAM\SULPIRIDE
     Indication: ANGER
  2. NEOTIAPIM [Suspect]
     Active Substance: QUETIAPINE
     Indication: DEMENTIA ALZHEIMER^S TYPE
     Dosage: 0.5 DF, TID (1/2 TABLET IN THE MORNING, 1/2 TABLET AT NOON AND 1/2 TABLET AT NIGHT)
     Route: 065
  3. SULPAN [Concomitant]
     Active Substance: BROMAZEPAM\SULPIRIDE
     Indication: SEIZURE
     Dosage: 1 DF, BID (1 IN MORNING AND 1 DOSE AT NIGHT)
     Route: 065
  4. GARDENAL ^AVENTIS^ [Concomitant]
     Active Substance: PHENOBARBITAL
     Indication: SEIZURE
     Dosage: 1.5 DF, UNK (FOR 40 YEARS)

REACTIONS (4)
  - Off label use [Unknown]
  - Bedridden [Unknown]
  - Wrong technique in product usage process [Unknown]
  - Gait disturbance [Unknown]
